FAERS Safety Report 9735007 (Version 1)
Quarter: 2013Q4

REPORT INFORMATION
  Report Type: Spontaneous
  Country: US (occurrence: US)
  Receive Date: 20131206
  Receipt Date: 20131206
  Transmission Date: 20140711
  Serious: No
  Sender: FDA-Public Use
  Company Number: US-009507513-1311USA009484

PATIENT
  Age: 67 Year
  Sex: Female

DRUGS (2)
  1. NASONEX [Suspect]
     Indication: DYSPHONIA
     Dosage: UNK
     Route: 045
  2. NASONEX [Suspect]
     Indication: SPEECH DISORDER

REACTIONS (3)
  - Dysphonia [Unknown]
  - Cough [Unknown]
  - Incorrect route of drug administration [Unknown]
